FAERS Safety Report 14830171 (Version 1)
Quarter: 2018Q2

REPORT INFORMATION
  Report Type: Spontaneous
  Country: US (occurrence: US)
  Receive Date: 20180430
  Receipt Date: 20180430
  Transmission Date: 20180711
  Serious: Yes (Other)
  Sender: FDA-Public Use
  Company Number: US-009507513-1804USA011399

PATIENT
  Sex: Male

DRUGS (2)
  1. MK-5348 [Suspect]
     Active Substance: VORAPAXAR SULFATE
     Dosage: 1 TABLET DAILY
     Route: 048
     Dates: start: 20100209, end: 20100629
  2. ZOCOR [Suspect]
     Active Substance: SIMVASTATIN
     Dosage: 80 MG TABLET, DAILY
     Route: 048
     Dates: start: 201002, end: 2010

REACTIONS (5)
  - Musculoskeletal discomfort [None]
  - Discomfort [Not Recovered/Not Resolved]
  - Back pain [Not Recovered/Not Resolved]
  - Haematochezia [Recovered/Resolved]
  - Abdominal pain upper [Recovered/Resolved]

NARRATIVE: CASE EVENT DATE: 2010
